FAERS Safety Report 9751584 (Version 6)
Quarter: 2017Q3

REPORT INFORMATION
  Report Type: Spontaneous
  Country: US (occurrence: US)
  Receive Date: 20131212
  Receipt Date: 20170919
  Transmission Date: 20171128
  Serious: Yes (Hospitalization, Other)
  Sender: FDA-Public Use
  Company Number: US-009507513-1312USA005178

PATIENT
  Sex: Female
  Weight: 72.56 kg

DRUGS (2)
  1. NUVARING [Suspect]
     Active Substance: ETHINYL ESTRADIOL\ETONOGESTREL
     Dosage: UNK
     Route: 067
     Dates: start: 201205, end: 201211
  2. NUVARING [Suspect]
     Active Substance: ETHINYL ESTRADIOL\ETONOGESTREL
     Indication: CONTRACEPTION
     Dosage: UNK
     Route: 067
     Dates: start: 201303, end: 201303

REACTIONS (11)
  - Deep vein thrombosis [Unknown]
  - Hypercoagulation [Unknown]
  - Thrombosis [Unknown]
  - Maternal exposure before pregnancy [Recovered/Resolved]
  - Vomiting [Unknown]
  - Abortion spontaneous [Recovered/Resolved]
  - Nausea [Unknown]
  - Soft tissue disorder [Unknown]
  - Peripheral swelling [Unknown]
  - Menstruation irregular [Unknown]
  - Rubber sensitivity [Unknown]

NARRATIVE: CASE EVENT DATE: 201205
